FAERS Safety Report 8008161-2 (Version None)
Quarter: 2011Q4

REPORT INFORMATION
  Report Type: 
  Country: None (occurrence: None)
  Receive Date: 20111227
  Receipt Date: 20111214
  Transmission Date: 20120403
  Serious: Yes (Other)
  Sender: FDA-Public Use
  Company Number: DE-UCBSA-047848

PATIENT
  Age: 51 Year
  Sex: Female

DRUGS (1)
  1. CERTOLIZUMAB PEGOL [Suspect]
     Indication: RHEUMATOID ARTHRITIS
     Dosage: UNKNOWN DOSE
     Route: 058

REACTIONS (3)
  - SPLENOMEGALY [None]
  - FELTY'S SYNDROME [None]
  - LARGE GRANULAR LYMPHOCYTOSIS [None]
